FAERS Safety Report 9479675 (Version 2)
Quarter: 2013Q4

REPORT INFORMATION
  Report Type: Report from Study
  Country: AT (occurrence: AT)
  Receive Date: 20130827
  Receipt Date: 20131011
  Transmission Date: 20140711
  Serious: Yes (Hospitalization)
  Sender: FDA-Public Use
  Company Number: AT-PFIZER INC-2013239416

PATIENT
  Age: 43 Year
  Sex: Female
  Weight: 102.2 kg

DRUGS (3)
  1. TOFACITINIB CITRATE [Suspect]
     Indication: COLITIS ULCERATIVE
     Dosage: 10 MG, 2X/DAY
     Route: 048
     Dates: start: 20130620
  2. SALAZOPYRIN [Concomitant]
     Indication: COLITIS ULCERATIVE
     Dosage: 3 G, 1X/DAY
     Route: 048
     Dates: start: 20081001
  3. ESCITALOPRAM [Concomitant]
     Indication: DEPRESSION
     Dosage: 20 MG, 1X/DAY
     Route: 048
     Dates: start: 20081001

REACTIONS (1)
  - Otitis externa [Recovered/Resolved]
